FAERS Safety Report 8844272 (Version 3)
Quarter: 2013Q4

REPORT INFORMATION
  Report Type: Spontaneous
  Country: US (occurrence: US)
  Receive Date: 20121017
  Receipt Date: 20131216
  Transmission Date: 20140711
  Serious: Yes (Other)
  Sender: FDA-Public Use
  Company Number: US-BAYER-2012-107872

PATIENT
  Age: 17 Year
  Sex: Female
  Weight: 84.81 kg

DRUGS (9)
  1. YAZ [Suspect]
     Indication: CONTRACEPTION
     Dosage: UNK
     Dates: start: 2010, end: 2012
  2. EXCEDRIN MIGRAINE [Concomitant]
     Dosage: UNK
     Dates: start: 2010, end: 2012
  3. NAPROXEN [Concomitant]
     Dosage: UNK
     Dates: start: 2010
  4. OXYCODONE/APAP [Concomitant]
     Dosage: 5 MG, UNK
  5. OXYCODONE/APAP [Concomitant]
     Dosage: 325 MG, UNK
  6. TRIAZOLAM [Concomitant]
     Dosage: 0.25 MG, UNK
  7. AMOXICILLIN [Concomitant]
     Dosage: 500 MG, UNK
  8. DEXAMETHASONE [Concomitant]
     Dosage: 0.75 MG, UNK
  9. HYDROCODONE W/APAP [Concomitant]
     Dosage: 7.5-65

REACTIONS (8)
  - Gallbladder disorder [None]
  - Abdominal pain upper [None]
  - Cholecystitis acute [None]
  - Injury [None]
  - Pain [None]
  - Emotional distress [None]
  - Anxiety [None]
  - Psychological trauma [None]
